FAERS Safety Report 5979239-X (Version None)
Quarter: 2008Q4

REPORT INFORMATION
  Report Type: 
  Country: None (occurrence: None)
  Receive Date: 20081204
  Receipt Date: 20081028
  Transmission Date: 20090506
  Serious: No
  Sender: FDA-Public Use
  Company Number: US-ABBOTT-08P-163-0471684-00

PATIENT
  Sex: Female
  Weight: 73.094 kg

DRUGS (3)
  1. TRICOR [Suspect]
     Indication: BLOOD CHOLESTEROL INCREASED
     Dosage: DAILY AT NIGHT
     Route: 048
     Dates: start: 20080816, end: 20080821
  2. TRICOR [Suspect]
     Indication: HYPERLIPIDAEMIA
  3. LEVOTHYROXINE SODIUM [Concomitant]
     Indication: DRUG USE FOR UNKNOWN INDICATION
     Dates: start: 20000101

REACTIONS (3)
  - FEELING HOT [None]
  - HYPERSENSITIVITY [None]
  - SWELLING FACE [None]
